FAERS Safety Report 16219225 (Version 3)
Quarter: 2020Q1

REPORT INFORMATION
  Report Type: Spontaneous
  Country: US (occurrence: US)
  Receive Date: 20190419
  Receipt Date: 20200212
  Transmission Date: 20200409
  Serious: Yes (Hospitalization)
  Sender: FDA-Public Use
  Company Number: US-IBSA PHARMA-TIR-2019-0304

PATIENT
  Sex: Female

DRUGS (4)
  1. TIROSINT [Suspect]
     Active Substance: LEVOTHYROXINE SODIUM
     Indication: AUTOIMMUNE THYROIDITIS
     Dosage: ONE 13MCG AND ONE 50MCG CAPSULE
     Route: 048
     Dates: start: 2019
  2. TIROSINT [Suspect]
     Active Substance: LEVOTHYROXINE SODIUM
     Indication: AUTOIMMUNE THYROIDITIS
     Dosage: 50MCG DAILY
     Route: 048
  3. TIROSINT [Suspect]
     Active Substance: LEVOTHYROXINE SODIUM
     Dosage: 50MCG
     Route: 048
  4. TIROSINT [Suspect]
     Active Substance: LEVOTHYROXINE SODIUM
     Dosage: ONE 50MCG AND ONE 13MCG CAPSULE
     Route: 048
     Dates: start: 2019

REACTIONS (15)
  - Spinal cord injury [Unknown]
  - Reverse tri-iodothyronine increased [Unknown]
  - Ill-defined disorder [Unknown]
  - Foreign body in respiratory tract [Recovered/Resolved]
  - Drug ineffective [Unknown]
  - Palpitations [Recovered/Resolved]
  - Loss of consciousness [Unknown]
  - Fall [Unknown]
  - Nausea [Recovered/Resolved]
  - Malaise [Unknown]
  - Therapeutic product effect decreased [Unknown]
  - Anti-thyroid antibody positive [Unknown]
  - Tremor [Recovered/Resolved]
  - Blood thyroid stimulating hormone increased [Not Recovered/Not Resolved]
  - Drug level below therapeutic [Unknown]

NARRATIVE: CASE EVENT DATE: 2019
